FAERS Safety Report 9022496 (Version 1)
Quarter: 2013Q1

REPORT INFORMATION
  Report Type: Spontaneous
  Country: US (occurrence: US)
  Receive Date: 20130118
  Receipt Date: 20130118
  Transmission Date: 20140127
  Serious: Yes (Death)
  Sender: FDA-Public Use
  Company Number: US-EISAI INC-E7273-00358-SPO-US

PATIENT
  Sex: Female

DRUGS (1)
  1. TARGRETIN CAPSULES [Suspect]
     Indication: DEMENTIA ALZHEIMER^S TYPE
     Dosage: 2 CAPSULES
     Route: 048
     Dates: start: 201207, end: 201212

REACTIONS (1)
  - Dementia Alzheimer^s type [Fatal]
